FAERS Safety Report 10467023 (Version 2)
Quarter: 2015Q1

REPORT INFORMATION
  Report Type: Spontaneous
  Country: US (occurrence: US)
  Receive Date: 20140922
  Receipt Date: 20150119
  Transmission Date: 20150720
  Serious: Yes (Hospitalization)
  Sender: FDA-Public Use
  Company Number: US-NOVOPROD-422898

PATIENT
  Age: 76 Year
  Sex: Female
  Weight: 52.15 kg

DRUGS (4)
  1. LEVEMIR [Suspect]
     Active Substance: INSULIN DETEMIR
     Dosage: 25 UNITS IN THE MORNING AND 30 UNITS IN THE EVENING
     Dates: start: 20140804
  2. LEVEMIR [Suspect]
     Active Substance: INSULIN DETEMIR
     Indication: TYPE 2 DIABETES MELLITUS
     Dosage: 30 U, BID
     Route: 058
  3. NOVOLOG [Suspect]
     Active Substance: INSULIN ASPART
     Indication: TYPE 2 DIABETES MELLITUS
     Dosage: UNK
     Route: 058
     Dates: end: 2014
  4. LEVEMIR [Suspect]
     Active Substance: INSULIN DETEMIR
     Dosage: SELF-DOSE ADDITIONAL LEVEMIR AS NEEDED
     Route: 058

REACTIONS (5)
  - Decreased appetite [Not Recovered/Not Resolved]
  - Weight decreased [Not Recovered/Not Resolved]
  - Hypoglycaemia [Recovered/Resolved]
  - Nasopharyngitis [Recovered/Resolved]
  - Blood glucose increased [Not Recovered/Not Resolved]

NARRATIVE: CASE EVENT DATE: 2014
